FAERS Safety Report 14858437 (Version 3)
Quarter: 2018Q2

REPORT INFORMATION
  Report Type: Spontaneous
  Country: US (occurrence: US)
  Receive Date: 20180508
  Receipt Date: 20180608
  Transmission Date: 20180711
  Serious: No
  Sender: FDA-Public Use
  Company Number: US-LUNDBECK-DKLU2048224

PATIENT
  Sex: Female
  Weight: 96 kg

DRUGS (19)
  1. DESMOPRESSIN [Concomitant]
     Active Substance: DESMOPRESSIN
     Indication: DYSPNOEA
  2. PINDOLOL. [Concomitant]
     Active Substance: PINDOLOL
     Indication: HYPOTENSION
  3. PINDOLOL. [Concomitant]
     Active Substance: PINDOLOL
     Indication: DYSPNOEA
  4. DESMOPRESSIN [Concomitant]
     Active Substance: DESMOPRESSIN
     Indication: HEADACHE
     Route: 065
     Dates: start: 20180403, end: 20180404
  5. DESMOPRESSIN [Concomitant]
     Active Substance: DESMOPRESSIN
     Indication: HYPOTENSION
  6. MIDODRINE [Concomitant]
     Active Substance: MIDODRINE
     Indication: DYSPNOEA
  7. FLORINEF ACETATE [Concomitant]
     Active Substance: FLUDROCORTISONE ACETATE
     Indication: HYPOTENSION
  8. FLORINEF ACETATE [Concomitant]
     Active Substance: FLUDROCORTISONE ACETATE
     Indication: DYSPNOEA
  9. NORTHERA [Suspect]
     Active Substance: DROXIDOPA
     Indication: ORTHOSTATIC HYPOTENSION
     Route: 065
     Dates: start: 20180430
  10. NORTHERA [Suspect]
     Active Substance: DROXIDOPA
     Indication: DIZZINESS
     Route: 065
  11. PINDOLOL. [Concomitant]
     Active Substance: PINDOLOL
     Indication: HEADACHE
     Route: 065
     Dates: start: 20180312
  12. DESMOPRESSIN [Concomitant]
     Active Substance: DESMOPRESSIN
     Indication: CHEST DISCOMFORT
  13. FLORINEF ACETATE [Concomitant]
     Active Substance: FLUDROCORTISONE ACETATE
     Indication: CHEST DISCOMFORT
  14. PINDOLOL. [Concomitant]
     Active Substance: PINDOLOL
     Indication: CHEST DISCOMFORT
  15. MIDODRINE [Concomitant]
     Active Substance: MIDODRINE
     Indication: HEADACHE
     Route: 065
     Dates: start: 20180312, end: 20180507
  16. MIDODRINE [Concomitant]
     Active Substance: MIDODRINE
     Indication: CHEST DISCOMFORT
  17. NORTHERA [Suspect]
     Active Substance: DROXIDOPA
     Indication: AUTONOMIC NEUROPATHY
     Route: 065
     Dates: start: 20180418
  18. FLORINEF ACETATE [Concomitant]
     Active Substance: FLUDROCORTISONE ACETATE
     Indication: HEADACHE
     Route: 065
     Dates: start: 20180312, end: 20180507
  19. MIDODRINE [Concomitant]
     Active Substance: MIDODRINE
     Indication: HYPOTENSION

REACTIONS (3)
  - Blood pressure increased [Unknown]
  - Heart rate increased [Unknown]
  - Blood pressure decreased [Unknown]
